FAERS Safety Report 9601980 (Version 1)
Quarter: 2013Q4

REPORT INFORMATION
  Report Type: Spontaneous
  Country: IN (occurrence: None)
  Receive Date: 20131002
  Receipt Date: 20131002
  Transmission Date: 20140711
  Serious: Yes (Other)
  Sender: FDA-Public Use
  Company Number: AXC-2013-000502

PATIENT
  Sex: Female

DRUGS (1)
  1. DICYCLOMINE [Suspect]
     Indication: PRODUCT USED FOR UNKNOWN INDICATION

REACTIONS (3)
  - Drug abuse [None]
  - Mental disorder [None]
  - Anticholinergic syndrome [None]
